FAERS Safety Report 21517603 (Version 1)
Quarter: 2022Q4

REPORT INFORMATION
  Report Type: Spontaneous
  Country: AU (occurrence: None)
  Receive Date: 20221028
  Receipt Date: 20221028
  Transmission Date: 20230112
  Serious: Yes (Other)
  Sender: FDA-Public Use
  Company Number: AU-ROCHE-3206704

PATIENT
  Sex: Female

DRUGS (2)
  1. OCREVUS [Suspect]
     Active Substance: OCRELIZUMAB
     Indication: Product used for unknown indication
     Route: 065
  2. MAVENCLAD [Suspect]
     Active Substance: CLADRIBINE
     Indication: Product used for unknown indication
     Route: 065

REACTIONS (3)
  - Abdominal pain [Unknown]
  - Decreased appetite [Unknown]
  - Ovarian cancer [Unknown]
